FAERS Safety Report 5225293-2 (Version None)
Quarter: 2007Q1

REPORT INFORMATION
  Report Type: 
  Country: None (occurrence: None)
  Receive Date: 20070131
  Receipt Date: 20061226
  Transmission Date: 20070707
  Serious: No
  Sender: FDA-Public Use
  Company Number: US-AMGEN-US204745

PATIENT

DRUGS (1)
  1. VECTIBIX [Suspect]
     Route: 065

REACTIONS (2)
  - DERMATITIS ACNEIFORM [None]
  - FOLLICULITIS [None]
